FAERS Safety Report 18765710 (Version 1)
Quarter: 2021Q1

REPORT INFORMATION
  Report Type: Spontaneous
  Country: IE (occurrence: IE)
  Receive Date: 20210120
  Receipt Date: 20210120
  Transmission Date: 20210419
  Serious: Yes (Other)
  Sender: FDA-Public Use
  Company Number: IE-ANIPHARMA-2021-IE-000002

PATIENT
  Age: 38 Year
  Sex: Female

DRUGS (6)
  1. AC?T [CYCLOPHOSPHAMIDE] [Suspect]
     Active Substance: CYCLOPHOSPHAMIDE
     Dosage: UNKNOWN DOSE AND FREQUENCY
     Route: 065
  2. AC?T [DOXORUBICIN] [Suspect]
     Active Substance: DOXORUBICIN
  3. LETROZOLE. [Suspect]
     Active Substance: LETROZOLE
     Dosage: UNKNOWN DOSE AND FREQUENCY
     Route: 065
     Dates: start: 20180220
  4. ANASTROZOLE. [Suspect]
     Active Substance: ANASTROZOLE
     Indication: BREAST CANCER METASTATIC
     Dosage: UNKNOWN DOSE AND FREQUENCY
     Route: 048
     Dates: start: 2016
  5. TAMOXIFEN [Suspect]
     Active Substance: TAMOXIFEN
     Dosage: UNKNOWN DOSE AND FREQUENCY
     Route: 048
     Dates: end: 201512
  6. AC?T [PACLITAXEL] [Suspect]
     Active Substance: PACLITAXEL

REACTIONS (2)
  - Breast cancer recurrent [Unknown]
  - Metastases to lung [Unknown]

NARRATIVE: CASE EVENT DATE: 201511
